FAERS Safety Report 5591627-2 (Version None)
Quarter: 2008Q1

REPORT INFORMATION
  Report Type: 
  Country: None (occurrence: None)
  Receive Date: 20080115
  Receipt Date: 20080107
  Transmission Date: 20080703
  Serious: Yes (Hospitalization)
  Sender: FDA-Public Use
  Company Number: JP-ROCHE-490899

PATIENT
  Age: 33 Year
  Sex: Male

DRUGS (29)
  1. VALGANCICLOVIR HCL [Suspect]
     Route: 048
     Dates: start: 20050401, end: 20050613
  2. VALGANCICLOVIR HCL [Suspect]
     Dosage: INDICATION: CYTOMEGALOVIRUS VIRAEMIA.
     Route: 048
     Dates: start: 20050921, end: 20060331
  3. EPIVIR [Suspect]
     Indication: HIV INFECTION
     Route: 048
     Dates: start: 20050401, end: 20050518
  4. EPIVIR [Suspect]
     Route: 048
     Dates: start: 20050803, end: 20060331
  5. ZERIT [Suspect]
     Indication: HIV INFECTION
     Route: 048
     Dates: start: 20050401, end: 20050518
  6. ZERIT [Suspect]
     Route: 048
     Dates: start: 20050803, end: 20060331
  7. NORVIR [Suspect]
     Indication: HIV INFECTION
     Route: 048
     Dates: start: 20050803, end: 20060331
  8. LEXIVA [Suspect]
     Indication: HIV INFECTION
     Route: 048
     Dates: start: 20050803, end: 20060331
  9. EFAVIRENZ [Concomitant]
     Route: 048
     Dates: start: 20050401, end: 20050613
  10. DIFLUCAN [Concomitant]
     Route: 048
     Dates: start: 20050428, end: 20050613
  11. DIFLUCAN [Concomitant]
     Route: 048
     Dates: start: 20050922, end: 20060331
  12. TRUVADA [Concomitant]
     Route: 048
     Dates: start: 20050519, end: 20050613
  13. KETOTIFEN FUMARATE [Concomitant]
     Route: 048
     Dates: start: 20050519, end: 20050613
  14. BAKTAR [Concomitant]
     Route: 048
     Dates: start: 20050614, end: 20060331
  15. ZITHROMAX [Concomitant]
     Route: 048
     Dates: start: 20050803, end: 20060331
  16. ETHAMBUTOL HCL [Concomitant]
     Dosage: DRUG NAME: EBUTOL
     Route: 048
     Dates: start: 20050803, end: 20060331
  17. CIPROFLOXACIN [Concomitant]
     Dates: start: 20050803, end: 20060331
  18. SENNA EXTRACT [Concomitant]
     Dosage: DRUG NAME: YODEL-S
     Route: 048
     Dates: start: 20050803, end: 20060331
  19. TAKEPRON [Concomitant]
     Dates: start: 20050803, end: 20060331
  20. AMIKACIN SULPHATE [Concomitant]
     Route: 051
     Dates: start: 20050803, end: 20050920
  21. FUNGUARD [Concomitant]
     Route: 041
     Dates: start: 20050803, end: 20050920
  22. PREDONINE [Concomitant]
     Dates: start: 20050803, end: 20050920
  23. PREDONINE [Concomitant]
     Dates: start: 20050921, end: 20051212
  24. PREDONINE [Concomitant]
     Dates: start: 20051213, end: 20060331
  25. FESIN [Concomitant]
     Route: 042
     Dates: start: 20050803, end: 20050810
  26. GANCICLOVIR [Concomitant]
     Route: 041
     Dates: start: 20050820, end: 20050920
  27. ZADITEN [Concomitant]
     Route: 048
     Dates: start: 20050519, end: 20050613
  28. CRAVIT [Concomitant]
     Route: 048
     Dates: start: 20050609, end: 20050616
  29. MINOMYCIN [Concomitant]
     Route: 048
     Dates: start: 20050613, end: 20050616

REACTIONS (5)
  - CYTOMEGALOVIRUS VIRAEMIA [None]
  - IMMUNE RECONSTITUTION SYNDROME [None]
  - IRON DEFICIENCY ANAEMIA [None]
  - RHINITIS ALLERGIC [None]
  - UPPER RESPIRATORY TRACT INFLAMMATION [None]
